FAERS Safety Report 7992761 (Version 3)
Quarter: 2012Q4

REPORT INFORMATION
  Report Type: 
  Country: US (occurrence: US)
  Receive Date: 20110615
  Receipt Date: 20121010
  Transmission Date: 20130627
  Serious: Yes (Other)
  Sender: FDA-Public Use
  Company Number: US-US-EMD SERONO, INC.-7064277

PATIENT
  Age: 47 Year
  Sex: Female

DRUGS (4)
  1. REBIF [Suspect]
     Indication: MULTIPLE SCLEROSIS
     Route: 058
     Dates: start: 20050607, end: 201104
  2. REBIF [Suspect]
     Route: 058
     Dates: start: 20110501
  3. IBUPROFEN [Concomitant]
     Indication: INFLUENZA LIKE ILLNESS
  4. CITALOPRAM [Concomitant]
     Indication: ANXIETY

REACTIONS (3)
  - Pneumonia [Recovered/Resolved]
  - Bronchitis [Recovered/Resolved]
  - Gastroenteritis viral [Unknown]
